FAERS Safety Report 25056059 (Version 1)
Quarter: 2025Q1

REPORT INFORMATION
  Report Type: Spontaneous
  Country: US (occurrence: US)
  Receive Date: 20250309
  Receipt Date: 20250309
  Transmission Date: 20250408
  Serious: No
  Sender: BLUEPRINT MEDICINES
  Company Number: US-Blueprint Medicines Corporation-2025-AER-00410

PATIENT
  Age: 75 Year
  Sex: Male

DRUGS (2)
  1. AYVAKIT [Suspect]
     Active Substance: AVAPRITINIB
     Indication: Advanced systemic mastocytosis
     Route: 065
     Dates: start: 2019
  2. AYVAKIT [Suspect]
     Active Substance: AVAPRITINIB
     Indication: Chronic lymphocytic leukaemia

REACTIONS (1)
  - Memory impairment [Unknown]
